FAERS Safety Report 5597784-6 (Version None)
Quarter: 2007Q4

REPORT INFORMATION
  Report Type: 
  Country: None (occurrence: None)
  Receive Date: 20071221
  Receipt Date: 20071022
  Transmission Date: 20080405
  Serious: No
  Sender: FDA-Public Use
  Company Number: SPV1-2007-04669

PATIENT
  Age: 10 Year
  Sex: Male
  Weight: 43.1 kg

DRUGS (4)
  1. VYVANSE [Suspect]
     Indication: ATTENTION DEFICIT/HYPERACTIVITY DISORDER
     Dosage: 30 MG, 1X/DAY:QD, ORAL
     Route: 048
     Dates: start: 20071020, end: 20071021
  2. CLONIDINE [Concomitant]
  3. CLARITIN /00413701/ ( [Concomitant]
  4. GFLICLAZIDE [Concomitant]

REACTIONS (1)
  - VISION BLURRED [None]
